FAERS Safety Report 6877091-1 (Version None)
Quarter: 2010Q3

REPORT INFORMATION
  Report Type: 
  Country: None (occurrence: None)
  Receive Date: 20100727
  Receipt Date: 20100713
  Transmission Date: 20110219
  Serious: Yes (Death, Hospitalization)
  Sender: FDA-Public Use
  Company Number: TR-WATSON-2010-09588

PATIENT
  Age: 36 Year
  Sex: Male

DRUGS (4)
  1. HALOPERIDOL LACTATE [Suspect]
     Indication: PSYCHOTIC DISORDER
     Dosage: 15 MG, SINGLE
     Route: 030
  2. RISPERIDONE [Suspect]
     Indication: PRODUCT USED FOR UNKNOWN INDICATION
     Dosage: 4 MG, DAILY
     Route: 048
  3. CHLORPROMAZINE HCL [Suspect]
     Indication: PSYCHOTIC DISORDER
     Dosage: 25 MG, SINGLE
     Route: 030
  4. OLANZAPINE [Suspect]
     Indication: PRODUCT USED FOR UNKNOWN INDICATION
     Dosage: 5 MG, UNK

REACTIONS (5)
  - CARDIO-RESPIRATORY ARREST [None]
  - POTENTIATING DRUG INTERACTION [None]
  - PSYCHOTIC DISORDER [None]
  - SPASMODIC DYSPHONIA [None]
  - WRONG DRUG ADMINISTERED [None]
